FAERS Safety Report 23124592 (Version 1)
Quarter: 2023Q4

REPORT INFORMATION
  Report Type: Spontaneous
  Country: US (occurrence: None)
  Receive Date: 20231027
  Receipt Date: 20231027
  Transmission Date: 20240110
  Serious: Yes (Hospitalization)
  Sender: FDA-Public Use
  Company Number: None

PATIENT
  Age: 50 Year
  Sex: Female

DRUGS (1)
  1. TREMFYA [Suspect]
     Active Substance: GUSELKUMAB
     Dosage: OTHER FREQUENCY : EVERY8;?
     Route: 058
     Dates: start: 20230817

REACTIONS (1)
  - Appendicectomy [None]

NARRATIVE: CASE EVENT DATE: 20230904
